FAERS Safety Report 5718512-7 (Version None)
Quarter: 2008Q2

REPORT INFORMATION
  Report Type: 
  Country: None (occurrence: None)
  Receive Date: 20080425
  Receipt Date: 20080415
  Transmission Date: 20081010
  Serious: Yes (Hospitalization, Other)
  Sender: FDA-Public Use
  Company Number: US-PFIZER INC-2008002559

PATIENT
  Age: 79 Year
  Sex: Female

DRUGS (16)
  1. CHANTIX [Suspect]
     Indication: SMOKING CESSATION THERAPY
     Route: 048
  2. ALL OTHER NON-THERAPEUTIC PRODUCTS [Suspect]
  3. LIBRIUM [Concomitant]
  4. ENALAPRIL MALEATE [Concomitant]
  5. IMIPRAMINE [Concomitant]
  6. ANTICOAGULANTS [Concomitant]
  7. ALL OTHER THERAPEUTIC PRODUCTS [Concomitant]
  8. ANTIHYPERTENSIVES [Concomitant]
  9. CEPHALEXIN [Concomitant]
  10. DIURETICS [Concomitant]
  11. PLAVIX [Concomitant]
  12. ASPIRIN [Concomitant]
  13. NITROGLYCERIN [Concomitant]
  14. ALL OTHER THERAPEUTIC PRODUCTS [Concomitant]
  15. AMITRIPTYLINE HCL [Concomitant]
  16. COLESTIPOL HYDROCHLORIDE [Concomitant]

REACTIONS (53)
  - ABNORMAL BEHAVIOUR [None]
  - ANGER [None]
  - ANOREXIA [None]
  - ANXIETY [None]
  - ARTHRITIS [None]
  - BALANCE DISORDER [None]
  - BLISTER [None]
  - BLOOD ELECTROLYTES DECREASED [None]
  - BLUE TOE SYNDROME [None]
  - CALCINOSIS [None]
  - CARDIAC DISORDER [None]
  - CARDIOVASCULAR DISORDER [None]
  - CELLULITIS [None]
  - CEREBROVASCULAR ACCIDENT [None]
  - CONSTIPATION [None]
  - CONVULSION [None]
  - DEPRESSION [None]
  - DIARRHOEA [None]
  - DISTURBANCE IN ATTENTION [None]
  - DYSARTHRIA [None]
  - DYSGEUSIA [None]
  - ELECTROLYTE IMBALANCE [None]
  - EMPHYSEMA [None]
  - FEELING ABNORMAL [None]
  - FLATULENCE [None]
  - GAIT DISTURBANCE [None]
  - HAIR GROWTH ABNORMAL [None]
  - HALLUCINATION [None]
  - ILLUSION [None]
  - INSOMNIA [None]
  - IRRITABILITY [None]
  - LIMB INJURY [None]
  - LOCALISED INFECTION [None]
  - MUSCLE SPASMS [None]
  - NAIL GROWTH ABNORMAL [None]
  - NERVOUS SYSTEM DISORDER [None]
  - NERVOUSNESS [None]
  - NIGHTMARE [None]
  - NOCTURIA [None]
  - ORAL INTAKE REDUCED [None]
  - PANIC ATTACK [None]
  - PAROSMIA [None]
  - POLLAKIURIA [None]
  - POOR PERIPHERAL CIRCULATION [None]
  - PRURITUS [None]
  - PULSE ABSENT [None]
  - SUICIDAL BEHAVIOUR [None]
  - SURGERY [None]
  - THERAPEUTIC RESPONSE UNEXPECTED [None]
  - THINKING ABNORMAL [None]
  - TREATMENT NONCOMPLIANCE [None]
  - URINARY INCONTINENCE [None]
  - VENOUS STASIS [None]
